FAERS Safety Report 12819026 (Version 1)
Quarter: 2016Q4

REPORT INFORMATION
  Report Type: Spontaneous
  Country: CN (occurrence: CN)
  Receive Date: 20161006
  Receipt Date: 20161006
  Transmission Date: 20170207
  Serious: Yes (Other)
  Sender: FDA-Public Use
  Company Number: CN-MYLANLABS-2016M1043015

PATIENT

DRUGS (3)
  1. DEXAMETHASONE. [Suspect]
     Active Substance: DEXAMETHASONE
     Indication: PEMPHIGUS
     Dosage: 0.05MG/ML, THREE TIMES DAILY
     Route: 061
  2. THALIDOMIDE [Concomitant]
     Active Substance: THALIDOMIDE
     Indication: PEMPHIGUS
     Route: 048
  3. PREDNISONE. [Suspect]
     Active Substance: PREDNISONE
     Indication: PEMPHIGUS
     Route: 048

REACTIONS (1)
  - Uterine haemorrhage [Recovered/Resolved]
